FAERS Safety Report 4836659-4 (Version None)
Quarter: 2005Q4

REPORT INFORMATION
  Report Type: 
  Country: None (occurrence: None)
  Receive Date: 20051121
  Receipt Date: 20051031
  Transmission Date: 20060501
  Serious: Yes (Hospitalization)
  Sender: FDA-Public Use
  Company Number: 12789

PATIENT
  Age: 70 Year
  Sex: Female
  Weight: 122 kg

DRUGS (8)
  1. CARBOPLATIN [Suspect]
     Indication: CHEMOTHERAPY
     Dosage: 760 MG PER_CYCLE IV
     Route: 042
     Dates: start: 20050913, end: 20050913
  2. ETOPOSIDE [Suspect]
     Indication: CHEMOTHERAPY
     Dosage: 200 MG PER_CYCLE IV
     Route: 042
     Dates: start: 20050913, end: 20050915
  3. DOMPERIDONE [Concomitant]
  4. DEXAMETHASONE [Concomitant]
  5. CIPROFLOXACIN [Concomitant]
  6. CLARITHROMYCIN [Concomitant]
  7. CANDESARTAN [Concomitant]
  8. NIFEDIPINE [Concomitant]

REACTIONS (5)
  - DIARRHOEA [None]
  - EPISTAXIS [None]
  - NAUSEA [None]
  - PAIN [None]
  - PYREXIA [None]
